FAERS Safety Report 15270018 (Version 3)
Quarter: 2018Q3

REPORT INFORMATION
  Report Type: Spontaneous
  Country: US (occurrence: US)
  Receive Date: 20180813
  Receipt Date: 20180920
  Transmission Date: 20181010
  Serious: No
  Sender: FDA-Public Use
  Company Number: US-PFIZER INC-2018323945

PATIENT
  Age: 17 Year
  Sex: Male
  Weight: 72.57 kg

DRUGS (1)
  1. EUCRISA [Suspect]
     Active Substance: CRISABOROLE
     Indication: ECZEMA
     Dosage: UNK, 2X/DAY
     Dates: start: 201801, end: 201801

REACTIONS (7)
  - Swelling face [Recovered/Resolved]
  - Eye swelling [Recovered/Resolved]
  - Drug ineffective [Unknown]
  - Madarosis [Unknown]
  - Condition aggravated [Unknown]
  - Eyelid bleeding [Unknown]
  - Eczema [Unknown]

NARRATIVE: CASE EVENT DATE: 201801
